FAERS Safety Report 7085496-1 (Version None)
Quarter: 2010Q4

REPORT INFORMATION
  Report Type: 
  Country: None (occurrence: None)
  Receive Date: 20101105
  Receipt Date: 20101101
  Transmission Date: 20110411
  Serious: Yes (Hospitalization, Other)
  Sender: FDA-Public Use
  Company Number: US-ROXANE LABORATORIES, INC.-2010-RO-01443RO

PATIENT
  Age: 32 Year
  Sex: Female

DRUGS (1)
  1. FLUTICASONE PROPIONATE [Suspect]
     Indication: EOSINOPHILIC OESOPHAGITIS

REACTIONS (3)
  - DYSPHAGIA [None]
  - HERPES OESOPHAGITIS [None]
  - UPPER RESPIRATORY TRACT INFECTION [None]
